APPROVED DRUG PRODUCT: ADIPEX-P
Active Ingredient: PHENTERMINE HYDROCHLORIDE
Strength: 37.5MG
Dosage Form/Route: TABLET;ORAL
Application: A085128 | Product #001 | TE Code: AA
Applicant: TEVA PHARMACEUTICALS USA INC
Approved: Approved Prior to Jan 1, 1982 | RLD: Yes | RS: Yes | Type: RX